FAERS Safety Report 18514294 (Version 1)
Quarter: 2020Q4

REPORT INFORMATION
  Report Type: Spontaneous
  Country: PT (occurrence: PT)
  Receive Date: 20201118
  Receipt Date: 20201118
  Transmission Date: 20210114
  Serious: Yes (Death)
  Sender: FDA-Public Use
  Company Number: PT-009507513-2011PRT009559

PATIENT
  Age: 85 Year
  Sex: Male

DRUGS (1)
  1. PEMBROLIZUMAB. [Suspect]
     Active Substance: PEMBROLIZUMAB
     Indication: LUNG ADENOCARCINOMA
     Dosage: 200 MILLIGRAM, EVERY 3 WEEKS
     Dates: start: 20200902, end: 20200902

REACTIONS (1)
  - Abdominal discomfort [Fatal]

NARRATIVE: CASE EVENT DATE: 20200904
